FAERS Safety Report 8854299 (Version 1)
Quarter: 2012Q4

REPORT INFORMATION
  Report Type: 
  Country: US (occurrence: US)
  Receive Date: 20121023
  Receipt Date: 20121023
  Transmission Date: 20130627
  Serious: No
  Sender: FDA-Public Use
  Company Number: US-B.I. PHARMACEUTICALS,INC./RIDGEFIELD-2012-BP-25299BP

PATIENT
  Age: 67 None
  Sex: Female
  Weight: 64 kg

DRUGS (6)
  1. SPIRIVA [Suspect]
     Indication: CHRONIC OBSTRUCTIVE PULMONARY DISEASE
     Dosage: 18 mcg
     Route: 055
     Dates: start: 2004
  2. ALBUTEROL [Concomitant]
     Indication: WHEEZING
     Route: 055
     Dates: start: 2004
  3. TOPROL [Concomitant]
     Indication: HYPERTENSION
     Dosage: 50 mg
     Route: 048
     Dates: start: 2008
  4. HCTZ [Concomitant]
     Indication: HYPERTENSION
     Dosage: 25 mg
     Route: 048
     Dates: start: 2007
  5. POTASSIUM CHLORIDE [Concomitant]
     Indication: BLOOD POTASSIUM DECREASED
     Dosage: 10 mEq
     Route: 048
     Dates: start: 2011
  6. ZOCOR [Concomitant]
     Indication: BLOOD CHOLESTEROL INCREASED
     Dosage: 10 mg
     Route: 048
     Dates: start: 2010

REACTIONS (3)
  - Dyspnoea [Recovered/Resolved]
  - Underdose [Recovered/Resolved]
  - Product quality issue [Recovered/Resolved]
